FAERS Safety Report 10698191 (Version 1)
Quarter: 2015Q1

REPORT INFORMATION
  Report Type: Spontaneous
  Country: US (occurrence: None)
  Receive Date: 20150107
  Receipt Date: 20150107
  Transmission Date: 20150721
  Serious: Yes (Hospitalization)
  Sender: FDA-Public Use
  Company Number: None

PATIENT
  Age: 72 Year
  Sex: Male

DRUGS (1)
  1. LISINOPRIL. [Suspect]
     Active Substance: LISINOPRIL
     Indication: HYPERTENSION
     Dosage: ONE TABLET QD ORAL
     Route: 048
     Dates: start: 20150102, end: 20150102

REACTIONS (2)
  - Dizziness [None]
  - Fall [None]

NARRATIVE: CASE EVENT DATE: 20150102
